FAERS Safety Report 4496274-1 (Version None)
Quarter: 2004Q3

REPORT INFORMATION
  Report Type: 
  Country: None (occurrence: None)
  Receive Date: 20040921
  Receipt Date: 20040325
  Transmission Date: 20050211
  Serious: Yes (Hospitalization)
  Sender: FDA-Public Use
  Company Number: 163-20785-04030651

PATIENT
  Age: 67 Year
  Sex: Male
  Weight: 63.5036 kg

DRUGS (2)
  1. THALOMID [Suspect]
     Indication: COLORECTAL CANCER METASTATIC
     Dosage: 400 MG, QHS, ORAL
     Route: 048
     Dates: start: 20040212
  2. XELODA [Suspect]
     Indication: COLORECTAL CANCER METASTATIC
     Dosage: 3000 MG, DAILY
     Dates: start: 20040212

REACTIONS (1)
  - WOUND DEHISCENCE [None]
